FAERS Safety Report 5026183-0 (Version None)
Quarter: 2006Q2

REPORT INFORMATION
  Report Type: 
  Country: None (occurrence: None)
  Receive Date: 20060607
  Receipt Date: 20060526
  Transmission Date: 20061013
  Serious: Yes (Other)
  Sender: FDA-Public Use
  Company Number: HQWYE530405OCT04

PATIENT
  Age: 31 Year
  Sex: Female

DRUGS (3)
  1. EFFEXOR [Suspect]
     Dosage: 150 MG 1X PER 1 DAY, ORAL
     Route: 048
  2. ZYRTEC [Concomitant]
  3. UNSPECIFIED H2 RECEPTOR ANTAGONIST (UNSPECIFIED H2 RECEPTOR ANTAGONIST [Concomitant]

REACTIONS (4)
  - DRUG EXPOSURE DURING PREGNANCY [None]
  - PREGNANCY [None]
  - PREGNANCY INDUCED HYPERTENSION [None]
  - PULMONARY OEDEMA [None]
